FAERS Safety Report 12586038 (Version 1)
Quarter: 2016Q3

REPORT INFORMATION
  Report Type: Spontaneous
  Country: US (occurrence: None)
  Receive Date: 20160722
  Receipt Date: 20160722
  Transmission Date: 20161109
  Serious: No
  Sender: FDA-Public Use
  Company Number: None

PATIENT
  Age: 54 Year
  Sex: Male

DRUGS (1)
  1. IMATINIB 100MG SUN [Suspect]
     Active Substance: IMATINIB
     Route: 048
     Dates: start: 20160526

REACTIONS (2)
  - Muscle spasms [None]
  - Drug interaction [None]

NARRATIVE: CASE EVENT DATE: 20160615
